FAERS Safety Report 8236488-8 (Version None)
Quarter: 2012Q1

REPORT INFORMATION
  Report Type: 
  Country: None (occurrence: None)
  Receive Date: 20120327
  Receipt Date: 20120322
  Transmission Date: 20120608
  Serious: Yes (Hospitalization)
  Sender: FDA-Public Use
  Company Number: US-AMGEN-USASP2012017100

PATIENT
  Age: 61 Year
  Sex: Male
  Weight: 75.283 kg

DRUGS (2)
  1. ELIGARD [Concomitant]
     Indication: PROSTATE CANCER
     Dosage: 7.5 MG, UNK
     Route: 058
     Dates: start: 20120207
  2. XGEVA [Suspect]
     Indication: PROPHYLAXIS
     Dosage: 120 MG, ONE TIME DOSE
     Route: 058
     Dates: start: 20120207, end: 20120207

REACTIONS (2)
  - HYPOCALCAEMIA [None]
  - CONVULSION [None]
